FAERS Safety Report 10728290 (Version 2)
Quarter: 2015Q1

REPORT INFORMATION
  Report Type: Report from Study
  Country: US (occurrence: US)
  Receive Date: 20150121
  Receipt Date: 20150130
  Transmission Date: 20150721
  Serious: Yes (Hospitalization, Other)
  Sender: FDA-Public Use
  Company Number: PHHO2015US001114

PATIENT
  Age: 39 Year
  Sex: Female
  Weight: 59.2 kg

DRUGS (4)
  1. LDE 225 [Suspect]
     Active Substance: ERISMODEGIB
     Dosage: 600 MG, QD
     Route: 048
     Dates: start: 20150117
  2. LDE 225 [Suspect]
     Active Substance: ERISMODEGIB
     Indication: MEDULLOBLASTOMA
     Dosage: 600 MG, QD
     Route: 048
     Dates: start: 20141208, end: 20150115
  3. DEXADRON//DEXAMETHASONE [Suspect]
     Active Substance: DEXAMETHASONE
     Dosage: 12 MG, QD
     Route: 048
     Dates: start: 20150116
  4. DEXADRON//DEXAMETHASONE [Suspect]
     Active Substance: DEXAMETHASONE
     Indication: PRODUCT USED FOR UNKNOWN INDICATION
     Dosage: 10 MG, UNK
     Route: 048
     Dates: start: 20150105, end: 20150115

REACTIONS (1)
  - Confusional state [Recovered/Resolved]

NARRATIVE: CASE EVENT DATE: 20150115
